FAERS Safety Report 14742118 (Version 1)
Quarter: 2018Q2

REPORT INFORMATION
  Report Type: Spontaneous
  Country: GB (occurrence: GB)
  Receive Date: 20180410
  Receipt Date: 20180410
  Transmission Date: 20180711
  Serious: Yes (Other)
  Sender: FDA-Public Use
  Company Number: GB-PFIZER INC-2018141234

PATIENT
  Age: 83 Year
  Sex: Female
  Weight: 69 kg

DRUGS (8)
  1. SERETIDE [Concomitant]
     Active Substance: FLUTICASONE PROPIONATE\SALMETEROL XINAFOATE
     Dosage: 4 DF, 1X/DAY
     Route: 055
     Dates: start: 20171120
  2. AMLODIPINE BESILATE [Suspect]
     Active Substance: AMLODIPINE BESYLATE
     Dosage: UNK
     Dates: start: 20180116
  3. DOXYCYCLINE. [Concomitant]
     Active Substance: DOXYCYCLINE
     Dosage: TWICE DAILY AND THEN ONE DAILY
     Dates: start: 20180116, end: 20180123
  4. AMOXICILLIN. [Concomitant]
     Active Substance: AMOXICILLIN
     Indication: LOWER RESPIRATORY TRACT INFECTION
     Dosage: 3 DF, 1X/DAY
     Dates: start: 20171120
  5. BRALTUS [Concomitant]
     Dosage: 1 DF, 1X/DAY
     Route: 055
     Dates: start: 20171120
  6. MONTELUKAST [Concomitant]
     Active Substance: MONTELUKAST SODIUM
     Dosage: 1 DF, 1X/DAY
     Dates: start: 20171120
  7. VENTOLIN [Concomitant]
     Active Substance: ALBUTEROL SULFATE
     Dosage: 1 DF, UP TO 4 TIMES A DAY
     Dates: start: 20171120
  8. CO-DYDRAMOL [Concomitant]
     Active Substance: ACETAMINOPHEN\DIHYDROCODEINE
     Dosage: UNK
     Dates: start: 20171120

REACTIONS (2)
  - Joint swelling [Recovered/Resolved]
  - Oedema [Recovered/Resolved]

NARRATIVE: CASE EVENT DATE: 20180223
